FAERS Safety Report 25608151 (Version 1)
Quarter: 2025Q3

REPORT INFORMATION
  Report Type: Spontaneous
  Country: US (occurrence: US)
  Receive Date: 20250725
  Receipt Date: 20250725
  Transmission Date: 20251021
  Serious: No
  Sender: SANOFI AVENTIS
  Company Number: US-SA-2025SA213001

PATIENT
  Age: 54 Year
  Sex: Female

DRUGS (5)
  1. DUPIXENT [Suspect]
     Active Substance: DUPILUMAB
     Indication: Dermatitis atopic
     Dosage: 1 DF, QOW
     Route: 058
     Dates: start: 20250116
  2. DICLOFENAC [Concomitant]
     Active Substance: DICLOFENAC
  3. PANTOPRAZOLE [Concomitant]
     Active Substance: PANTOPRAZOLE
  4. SERTRALINE [Concomitant]
     Active Substance: SERTRALINE HYDROCHLORIDE
  5. SERTRALINE [Concomitant]
     Active Substance: SERTRALINE HYDROCHLORIDE

REACTIONS (1)
  - Arthritis [Unknown]

NARRATIVE: CASE EVENT DATE: 20250101
